FAERS Safety Report 5148251-5 (Version None)
Quarter: 2006Q4

REPORT INFORMATION
  Report Type: 
  Country: None (occurrence: None)
  Receive Date: 20060918
  Receipt Date: 20060323
  Transmission Date: 20070319
  Serious: Yes (Other)
  Sender: FDA-Public Use
  Company Number: US-JNJFOC-20060204829

PATIENT
  Age: 59 Year
  Sex: Female
  Weight: 48.5349 kg

DRUGS (8)
  1. TOPAMAX [Suspect]
     Indication: MIGRAINE PROPHYLAXIS
     Dosage: 50 MG, IN 1 DAY
  2. ASPIRIN [Concomitant]
  3. ADVAIR (SERETIDE MITE) [Concomitant]
  4. ALBUTEROL [Concomitant]
  5. ALLEGRA [Concomitant]
  6. LIPITOR [Concomitant]
  7. PLAVIX [Concomitant]
  8. SPIRIVA (ANTICHOLINERGIC AGENTS) [Concomitant]

REACTIONS (3)
  - GASTROINTESTINAL DISORDER [None]
  - HEADACHE [None]
  - METABOLIC ACIDOSIS [None]
